FAERS Safety Report 26208807 (Version 1)
Quarter: 2025Q4

REPORT INFORMATION
  Report Type: Spontaneous
  Country: CN (occurrence: CN)
  Receive Date: 20251229
  Receipt Date: 20251229
  Transmission Date: 20260117
  Serious: Yes (Hospitalization)
  Sender: BAYER HEALTHCARE PHARMACEUTICALS INC.
  Company Number: CN-BAYER-2025A169840

PATIENT
  Age: 67 Year
  Sex: Male
  Weight: 60 kg

DRUGS (1)
  1. ULTRAVIST [Suspect]
     Active Substance: IOPROMIDE
     Indication: Computerised tomogram
     Dosage: 70 ML, ONCE
     Route: 041
     Dates: start: 20250731, end: 20250731

REACTIONS (12)
  - Contrast media allergy [Recovering/Resolving]
  - Muscular weakness [Recovering/Resolving]
  - Pallor [Recovered/Resolved]
  - Nausea [Recovering/Resolving]
  - Pruritus [Recovering/Resolving]
  - Paraesthesia [Recovering/Resolving]
  - Flushing [Recovering/Resolving]
  - Blood pressure diastolic decreased [Recovering/Resolving]
  - Heart rate increased [Recovering/Resolving]
  - Gamma-glutamyltransferase increased [None]
  - Lymphocyte count decreased [None]
  - Haemoglobin decreased [None]

NARRATIVE: CASE EVENT DATE: 20250731
